FAERS Safety Report 18747571 (Version 3)
Quarter: 2021Q3

REPORT INFORMATION
  Report Type: Report from Study
  Country: US (occurrence: US)
  Receive Date: 20210115
  Receipt Date: 20210820
  Transmission Date: 20211014
  Serious: No
  Sender: FDA-Public Use
  Company Number: NVSC2021US008639

PATIENT
  Sex: Male

DRUGS (1)
  1. ENTRESTO [Suspect]
     Active Substance: SACUBITRIL\VALSARTAN
     Indication: PRODUCT USED FOR UNKNOWN INDICATION
     Dosage: UNK
     Route: 065

REACTIONS (8)
  - Blood pressure increased [Recovering/Resolving]
  - Ageusia [Unknown]
  - Throat clearing [Unknown]
  - Weight decreased [Unknown]
  - Joint swelling [Recovering/Resolving]
  - SARS-CoV-2 test positive [Unknown]
  - Nasal congestion [Unknown]
  - Anosmia [Unknown]
